FAERS Safety Report 4673776-6 (Version None)
Quarter: 2005Q2

REPORT INFORMATION
  Report Type: 
  Country: None (occurrence: None)
  Receive Date: 20050524
  Receipt Date: 20050520
  Transmission Date: 20051028
  Serious: Yes (Hospitalization, Other)
  Sender: FDA-Public Use
  Company Number: HQWYE648711MAY05

PATIENT
  Age: 43 Year
  Sex: Male

DRUGS (4)
  1. ADVIL [Suspect]
     Dosage: 400 MG 2X PER 1 DAY, ORAL
     Route: 048
     Dates: start: 20050327
  2. ACETAMINOPHEN [Suspect]
     Dosage: 500 MG 6X PER 1 DAY
     Dates: start: 20050324, end: 20050330
  3. NIFLURIL (NIFLUMIC ACID, ) [Suspect]
     Dosage: 4 TABLET 1X PER 1 DAY
     Dates: start: 20050324, end: 20050328
  4. RHUMAGRIP (PARACETAMOL/PSEUDOEPHEDRINE HYDROCHLORIDE, ) [Suspect]
     Dosage: 2 TABLETS
     Dates: start: 20050327

REACTIONS (12)
  - ABDOMINAL PAIN [None]
  - ALANINE AMINOTRANSFERASE INCREASED [None]
  - ARTHRALGIA [None]
  - ASPARTATE AMINOTRANSFERASE INCREASED [None]
  - GAMMA-GLUTAMYLTRANSFERASE INCREASED [None]
  - HEADACHE [None]
  - HENOCH-SCHONLEIN PURPURA [None]
  - MYALGIA [None]
  - PYREXIA [None]
  - REFUSAL OF TREATMENT BY PATIENT [None]
  - VASCULAR PURPURA [None]
  - VIRAL INFECTION [None]
